FAERS Safety Report 16079370 (Version 3)
Quarter: 2019Q3

REPORT INFORMATION
  Report Type: Report from Study
  Country: CA (occurrence: CA)
  Receive Date: 20190315
  Receipt Date: 20190710
  Transmission Date: 20191004
  Serious: Yes (Other)
  Sender: FDA-Public Use
  Company Number: PHHY2018CA159890

PATIENT
  Age: 73 Year
  Sex: Female

DRUGS (2)
  1. GILENYA [Suspect]
     Active Substance: FINGOLIMOD HYDROCHLORIDE
     Indication: PRODUCT USED FOR UNKNOWN INDICATION
     Dosage: UNK UNK, Q5W
     Route: 048
     Dates: start: 20180810
  2. GILENYA [Suspect]
     Active Substance: FINGOLIMOD HYDROCHLORIDE
     Dosage: 1 DF, Q5W (5 TIMES A WEEK TO SKIP SATURDAY AND SUNDAY)
     Route: 048
     Dates: start: 20190506

REACTIONS (10)
  - Lymphocyte count decreased [Unknown]
  - Renal disorder [Unknown]
  - Prescribed underdose [Unknown]
  - Abdominal pain upper [Unknown]
  - Muscular weakness [Unknown]
  - Gait disturbance [Unknown]
  - White blood cell count increased [Unknown]
  - Gastric ulcer [Unknown]
  - Gastric polyps [Unknown]
  - Decreased vibratory sense [Unknown]

NARRATIVE: CASE EVENT DATE: 20190506
